FAERS Safety Report 25346679 (Version 1)
Quarter: 2025Q2

REPORT INFORMATION
  Report Type: Spontaneous
  Country: US (occurrence: None)
  Receive Date: 20250521
  Receipt Date: 20250521
  Transmission Date: 20250717
  Serious: Yes (Hospitalization)
  Sender: FDA-CTU
  Company Number: None

PATIENT
  Age: 76 Year
  Sex: Male

DRUGS (1)
  1. APIXABAN [Suspect]
     Active Substance: APIXABAN
     Indication: Deep vein thrombosis
     Dosage: FREQUENCY : TWICE A DAY;?
     Route: 048
     Dates: end: 20250424

REACTIONS (5)
  - Fatigue [None]
  - Deep vein thrombosis [None]
  - Treatment failure [None]
  - Anticoagulation drug level below therapeutic [None]
  - Obstructive sleep apnoea syndrome [None]

NARRATIVE: CASE EVENT DATE: 20250424
